FAERS Safety Report 6576511-X (Version None)
Quarter: 2010Q1

REPORT INFORMATION
  Report Type: 
  Country: None (occurrence: None)
  Receive Date: 20100210
  Receipt Date: 20100127
  Transmission Date: 20100710
  Serious: Yes (Hospitalization)
  Sender: FDA-Public Use
  Company Number: FR-AMGEN-US256672

PATIENT
  Sex: Female
  Weight: 48 kg

DRUGS (1)
  1. ENBREL [Suspect]
     Indication: RHEUMATOID ARTHRITIS
     Route: 058
     Dates: start: 19991001

REACTIONS (12)
  - ATLANTOAXIAL INSTABILITY [None]
  - BONE FORMATION INCREASED [None]
  - CERVICAL CORD COMPRESSION [None]
  - CONDITION AGGRAVATED [None]
  - COUGH [None]
  - DEVICE RELATED INFECTION [None]
  - POST PROCEDURAL SEPSIS [None]
  - PYRAMIDAL TRACT SYNDROME [None]
  - RHEUMATOID NODULE [None]
  - SEPTIC ARTHRITIS STAPHYLOCOCCAL [None]
  - STAPHYLOCOCCAL SEPSIS [None]
  - SYNOVIAL DISORDER [None]
